FAERS Safety Report 8883684 (Version 8)
Quarter: 2014Q2

REPORT INFORMATION
  Report Type: Spontaneous
  Country: US (occurrence: US)
  Receive Date: 20121102
  Receipt Date: 20140417
  Transmission Date: 20141212
  Serious: Yes (Hospitalization, Disabling, Other)
  Sender: FDA-Public Use
  Company Number: US-009507513-1210USA010320

PATIENT
  Sex: Female
  Weight: 52.61 kg

DRUGS (6)
  1. FOSAMAX [Suspect]
     Indication: OSTEOPENIA
     Dosage: 10 MG, QD
     Route: 048
     Dates: start: 1995, end: 200802
  2. FOSAMAX [Suspect]
     Indication: OSTEOPOROSIS PROPHYLAXIS
     Dosage: 70 MG, QW
     Route: 048
  3. ALENDRONATE SODIUM [Suspect]
     Indication: OSTEOPENIA
     Dosage: 70 MG, UNK
     Dates: start: 20080220, end: 20111211
  4. ALENDRONATE SODIUM [Suspect]
     Indication: OSTEOPOROSIS PROPHYLAXIS
  5. CLARITIN [Concomitant]
     Indication: HYPERSENSITIVITY
     Dosage: UNK
     Route: 048
     Dates: start: 200108, end: 200108
  6. ALLEGRA [Concomitant]
     Indication: HYPERSENSITIVITY
     Dosage: UNK
     Dates: start: 200204, end: 200402

REACTIONS (87)
  - Femur fracture [Not Recovered/Not Resolved]
  - Open reduction of fracture [Unknown]
  - Osteonecrosis [Unknown]
  - Low turnover osteopathy [Not Recovered/Not Resolved]
  - Knee arthroplasty [Unknown]
  - Hypoacusis [Unknown]
  - Hip arthroplasty [Unknown]
  - Dizziness [Unknown]
  - Hypercholesterolaemia [Unknown]
  - Nasopharyngitis [Unknown]
  - Blood oestrogen abnormal [Unknown]
  - Vitamin D deficiency [Unknown]
  - Infection [Unknown]
  - Infection [Unknown]
  - Pain [Unknown]
  - Nasopharyngitis [Unknown]
  - Infection [Unknown]
  - Skin disorder [Unknown]
  - Cough [Unknown]
  - Inflammation [Unknown]
  - Pain [Unknown]
  - Eye infection [Unknown]
  - Inflammation [Unknown]
  - Inflammation [Unknown]
  - Pain [Unknown]
  - Inflammation [Unknown]
  - Adverse event [Unknown]
  - Fall [Unknown]
  - Adverse event [Unknown]
  - Osteoarthritis [Unknown]
  - Knee deformity [Unknown]
  - Osteoarthritis [Unknown]
  - Breast lump removal [Unknown]
  - Anaemia [Unknown]
  - Asthma [Unknown]
  - Osteoarthritis [Unknown]
  - Cataract operation [Unknown]
  - Osteoarthritis [Unknown]
  - Sinusitis [Unknown]
  - Pneumonia [Unknown]
  - Asthma [Unknown]
  - Hiatus hernia [Unknown]
  - Non-cardiac chest pain [Unknown]
  - Irritable bowel syndrome [Not Recovered/Not Resolved]
  - Patellofemoral pain syndrome [Unknown]
  - Fatigue [Not Recovered/Not Resolved]
  - Anaemia [Unknown]
  - Tendonitis [Unknown]
  - Peptic ulcer [Unknown]
  - Obstructive airways disorder [Unknown]
  - Respiratory disorder [Unknown]
  - Skin lesion excision [Unknown]
  - Depression [Unknown]
  - Anxiety [Unknown]
  - Herpes zoster [Unknown]
  - Stasis dermatitis [Unknown]
  - Spider vein [Unknown]
  - Cataract operation [Unknown]
  - Kyphosis [Unknown]
  - Foot deformity [Unknown]
  - Varicose vein [Unknown]
  - Scoliosis [Unknown]
  - Hyponatraemia [Unknown]
  - Impetigo [Unknown]
  - Blood pressure increased [Unknown]
  - Lobar pneumonia [Recovered/Resolved]
  - Ear pain [Unknown]
  - Upper-airway cough syndrome [Unknown]
  - Dysuria [Unknown]
  - Arteriosclerosis coronary artery [Unknown]
  - Exostosis [Unknown]
  - Presyncope [Unknown]
  - Haemorrhoids [Unknown]
  - Pelvic cyst [Unknown]
  - Diverticulum intestinal [Unknown]
  - Rectal haemorrhage [Unknown]
  - Ovarian failure [Unknown]
  - Nocturia [Unknown]
  - Tooth extraction [Unknown]
  - Panic attack [Unknown]
  - Arthritis [Unknown]
  - Back pain [Unknown]
  - Spinal disorder [Unknown]
  - Gastrooesophageal reflux disease [Unknown]
  - Gastrooesophageal reflux disease [Unknown]
  - Back pain [Not Recovered/Not Resolved]
  - Arthralgia [Not Recovered/Not Resolved]
